FAERS Safety Report 8196413-5 (Version None)
Quarter: 2012Q1

REPORT INFORMATION
  Report Type: 
  Country: None (occurrence: None)
  Receive Date: 20120307
  Receipt Date: 20120307
  Transmission Date: 20120608
  Serious: Yes (Other)
  Sender: FDA-Public Use
  Company Number: None

PATIENT
  Sex: Female

DRUGS (1)
  1. HYDROGEN PEROXIDE SOLUTION [Suspect]
     Dosage: ORAL
     Route: 048

REACTIONS (2)
  - TOOTH DISCOLOURATION [None]
  - ENAMEL ANOMALY [None]
